FAERS Safety Report 9011448 (Version 1)
Quarter: 2013Q1

REPORT INFORMATION
  Report Type: Spontaneous
  Country: NZ (occurrence: NZ)
  Receive Date: 20130108
  Receipt Date: 20130108
  Transmission Date: 20140127
  Serious: No
  Sender: FDA-Public Use
  Company Number: PHHY2012NZ016470

PATIENT
  Sex: Male

DRUGS (2)
  1. TASIGNA [Suspect]
     Indication: CHRONIC MYELOID LEUKAEMIA
     Dosage: 400 MG, BID
     Route: 048
     Dates: start: 201201
  2. TASIGNA [Suspect]
     Dosage: 200 MG, BID
     Route: 048
     Dates: start: 201202

REACTIONS (7)
  - Night sweats [Not Recovered/Not Resolved]
  - Hyperhidrosis [Recovered/Resolved]
  - Local swelling [Recovered/Resolved]
  - Myalgia [Recovering/Resolving]
  - Anaemia [Not Recovered/Not Resolved]
  - Pain in extremity [Unknown]
  - Musculoskeletal stiffness [Unknown]
